FAERS Safety Report 8129806-2 (Version None)
Quarter: 2012Q1

REPORT INFORMATION
  Report Type: 
  Country: None (occurrence: None)
  Receive Date: 20120210
  Receipt Date: 20120210
  Transmission Date: 20120608
  Serious: Yes (Other)
  Sender: FDA-Public Use
  Company Number: None

PATIENT
  Sex: Female
  Weight: 56.699 kg

DRUGS (1)
  1. SUBUTEX [Suspect]
     Indication: DRUG WITHDRAWAL MAINTENANCE THERAPY
     Dosage: FOUR
     Route: 060
     Dates: start: 20120126, end: 20120209

REACTIONS (2)
  - ORAL DISCOMFORT [None]
  - OROPHARYNGEAL BLISTERING [None]
